FAERS Safety Report 8481475-8 (Version None)
Quarter: 2012Q3

REPORT INFORMATION
  Report Type: 
  Country: None (occurrence: None)
  Receive Date: 20120702
  Receipt Date: 20120626
  Transmission Date: 20120928
  Serious: Yes (Hospitalization, Other)
  Sender: FDA-Public Use
  Company Number: US-PFIZER INC-2012153920

PATIENT
  Sex: Female
  Weight: 108.39 kg

DRUGS (3)
  1. LISINOPRIL [Concomitant]
     Indication: HYPERTENSION
     Dosage: UNK
  2. REVATIO [Suspect]
     Indication: HYPERTENSION
     Dosage: 20 MG, 1X/DAY
     Route: 048
  3. CELLCEPT [Concomitant]
     Indication: SARCOIDOSIS
     Dosage: UNK

REACTIONS (1)
  - PNEUMONIA [None]
